FAERS Safety Report 7475868 (Version 18)
Quarter: 2013Q1

REPORT INFORMATION
  Report Type: Spontaneous
  Country: US (occurrence: US)
  Receive Date: 20100715
  Receipt Date: 20130104
  Transmission Date: 20140127
  Serious: Yes (Hospitalization, Other)
  Sender: FDA-Public Use
  Company Number: US-BIOGENIDEC-2010BI023450

PATIENT
  Age: 71 Year
  Sex: Female

DRUGS (12)
  1. TYSABRI [Suspect]
     Indication: MULTIPLE SCLEROSIS
     Route: 042
     Dates: start: 20080527, end: 20100727
  2. DETROL [Concomitant]
     Route: 048
  3. DONEPEZIL [Concomitant]
     Route: 048
  4. FOSAMAX [Concomitant]
     Indication: OSTEOPOROSIS
     Route: 048
  5. SYNTHROID [Concomitant]
     Indication: HYPOTHYROIDISM
  6. JANUVIA [Concomitant]
  7. AMITRIPTYLINE [Concomitant]
     Indication: DIABETIC NEUROPATHY
  8. LANTUS [Concomitant]
     Indication: TYPE 2 DIABETES MELLITUS
     Dosage: DOSE UNIT:40
  9. MULTIVITAMIN [Concomitant]
  10. THYROID CAPSULES (NOS) [Concomitant]
  11. STOOL SOFTENER (NOS) [Concomitant]
  12. ASPIRIN [Concomitant]

REACTIONS (5)
  - Progressive multifocal leukoencephalopathy [Not Recovered/Not Resolved]
  - Hypoglycaemia [Recovered/Resolved]
  - Urinary tract infection [Unknown]
  - Fatigue [Not Recovered/Not Resolved]
  - Feeling abnormal [Not Recovered/Not Resolved]
